FAERS Safety Report 19473327 (Version 1)
Quarter: 2021Q2

REPORT INFORMATION
  Report Type: Spontaneous
  Country: GB (occurrence: GB)
  Receive Date: 20210629
  Receipt Date: 20210629
  Transmission Date: 20210717
  Serious: Yes (Other)
  Sender: FDA-Public Use
  Company Number: GB-MYLANLABS-2021M1038508

PATIENT
  Sex: Male

DRUGS (4)
  1. OXYCODONE [Suspect]
     Active Substance: OXYCODONE
     Indication: PROCEDURAL PAIN
     Dosage: 10 MILLIGRAM, BID
     Route: 048
     Dates: start: 20210618
  2. INSULIN ASPART [Concomitant]
     Active Substance: INSULIN ASPART
     Indication: ILL-DEFINED DISORDER
     Dosage: UNK
  3. INSULIN GLARGINE [Concomitant]
     Active Substance: INSULIN GLARGINE
     Indication: ILL-DEFINED DISORDER
     Dosage: UNK
  4. APIXABAN [Suspect]
     Active Substance: APIXABAN
     Indication: ANTICOAGULANT THERAPY
     Dosage: 2.5 MILLIGRAM, BID
     Route: 048
     Dates: start: 20210618

REACTIONS (1)
  - Hyperglycaemia [Unknown]
